FAERS Safety Report 4459954-X (Version None)
Quarter: 2004Q3

REPORT INFORMATION
  Report Type: 
  Country: None (occurrence: None)
  Receive Date: 20040928
  Receipt Date: 20030912
  Transmission Date: 20050211
  Serious: No
  Sender: FDA-Public Use
  Company Number: US-GLAXOSMITHKLINE-A0425679A

PATIENT
  Age: 62 Year
  Sex: Female
  Weight: 94.5 kg

DRUGS (5)
  1. SEREVENT [Suspect]
     Indication: ASTHMA
     Dosage: 50MCG TWICE PER DAY
     Route: 055
     Dates: start: 20030601
  2. ALBUTEROL [Concomitant]
  3. ZETIA [Concomitant]
  4. CLARITIN [Concomitant]
  5. CALCIUM [Concomitant]

REACTIONS (1)
  - DYSPNOEA [None]
